FAERS Safety Report 8585047-6 (Version None)
Quarter: 2012Q3

REPORT INFORMATION
  Report Type: 
  Country: None (occurrence: None)
  Receive Date: 20120810
  Receipt Date: 20120802
  Transmission Date: 20120928
  Serious: Yes (Hospitalization)
  Sender: FDA-Public Use
  Company Number: US-US-EMD SERONO, INC.-7057415

PATIENT
  Sex: Male
  Weight: 71 kg

DRUGS (3)
  1. REBIF [Suspect]
     Indication: MULTIPLE SCLEROSIS
     Route: 058
     Dates: start: 20110301, end: 20110301
  2. REBIF [Suspect]
     Route: 058
     Dates: start: 20110301, end: 20110523
  3. UNSPECIFIED MEDICATIONS [Concomitant]

REACTIONS (2)
  - MULTIPLE SCLEROSIS RELAPSE [None]
  - INAPPROPRIATE SCHEDULE OF DRUG ADMINISTRATION [None]
